FAERS Safety Report 5825703-3 (Version None)
Quarter: 2008Q3

REPORT INFORMATION
  Report Type: 
  Country: None (occurrence: None)
  Receive Date: 20080723
  Receipt Date: 20080716
  Transmission Date: 20090109
  Serious: Yes (Hospitalization)
  Sender: FDA-Public Use
  Company Number: S08-USA-01895-01

PATIENT
  Age: 81 Year
  Sex: Male

DRUGS (4)
  1. LEXAPRO [Suspect]
     Indication: DEPRESSION
     Dosage: 10 MG (10 MG, 1 IN 1 D), ORAL
     Route: 048
     Dates: start: 20070501, end: 20080523
  2. LISINOPRIL [Concomitant]
  3. METOPROLOL TARTRATE [Concomitant]
  4. PRILOSEC (OMEPRAZOLE) (OMEPRAZOLE) [Concomitant]

REACTIONS (4)
  - BENIGN PROSTATIC HYPERPLASIA [None]
  - MEMORY IMPAIRMENT [None]
  - RENAL FAILURE [None]
  - SOMNOLENCE [None]
